FAERS Safety Report 8296482-8 (Version None)
Quarter: 2012Q2

REPORT INFORMATION
  Report Type: 
  Country: None (occurrence: None)
  Receive Date: 20120418
  Receipt Date: 20120416
  Transmission Date: 20120825
  Serious: Yes (Hospitalization)
  Sender: FDA-Public Use
  Company Number: FR-PFIZER INC-2012078899

PATIENT
  Age: 82 Year
  Sex: Male

DRUGS (12)
  1. PYOSTACINE [Suspect]
     Dosage: 500 MG, 3X/DAY
     Route: 048
     Dates: start: 20120225, end: 20120304
  2. OXYCODONE HCL [Suspect]
     Dosage: 10 MG, 1X/DAY
     Route: 048
     Dates: start: 20120304, end: 20120306
  3. NEXIUM [Concomitant]
  4. ASPIRIN [Concomitant]
  5. POTASSIUM CHLORIDE [Suspect]
     Dosage: 1000 MG, 1X/DAY
     Dates: start: 20120225, end: 20120306
  6. PLAVIX [Concomitant]
  7. SOLU-MEDROL [Suspect]
     Dosage: 90 MG, 1X/DAY
     Route: 048
     Dates: start: 20120224, end: 20120306
  8. AMOXICILLIN TRIHYDRATE [Suspect]
     Dosage: 2 G, 3X/DAY
     Route: 048
     Dates: start: 20120305, end: 20120306
  9. OFLOXACIN [Suspect]
     Dosage: 200 MG, 2X/DAY
     Route: 048
     Dates: start: 20120305, end: 20120306
  10. AMLODIPINE BESYLATE [Concomitant]
  11. ACETAMINOPHEN [Suspect]
     Dosage: 1000 MG, 4X/DAY
     Route: 048
     Dates: start: 20120227, end: 20120305
  12. CORDARONE [Concomitant]

REACTIONS (2)
  - CYTOLYTIC HEPATITIS [None]
  - HEPATITIS CHOLESTATIC [None]
